FAERS Safety Report 9259074 (Version 3)
Quarter: 2013Q2

REPORT INFORMATION
  Report Type: Report from Study
  Country: IT (occurrence: IT)
  Receive Date: 20130426
  Receipt Date: 20130521
  Transmission Date: 20140414
  Serious: Yes (Hospitalization)
  Sender: FDA-Public Use
  Company Number: IT-BAXTER-2013BAX014990

PATIENT
  Age: 26 Year
  Sex: Male
  Weight: 65 kg

DRUGS (35)
  1. ENDOXAN BAXTER [Suspect]
     Indication: DIFFUSE LARGE B-CELL LYMPHOMA
     Dosage: 750 UNITS NOT REPORTED
     Route: 065
     Dates: start: 20121203, end: 20121203
  2. ENDOXAN BAXTER [Suspect]
     Dosage: 750 UNITS NOT REPORTED
     Route: 065
     Dates: start: 20121211
  3. ENDOXAN BAXTER [Suspect]
     Dosage: 750 UNITS NOT REPORTED
     Route: 065
     Dates: start: 20121227
  4. ENDOXAN BAXTER [Suspect]
     Dosage: 750 UNITS NOT REPORTED
     Route: 065
     Dates: start: 20130117
  5. ENDOXAN BAXTER [Suspect]
     Dosage: 750 UNITS NOT REPORTED
     Route: 065
     Dates: start: 20130131
  6. ENDOXAN BAXTER [Suspect]
     Dosage: 750 UNITS NOT REPORTED
     Route: 065
     Dates: start: 20130214
  7. DOXORUBICIN [Suspect]
     Indication: DIFFUSE LARGE B-CELL LYMPHOMA
     Dosage: 50 UNITS NOT REPORTED
     Route: 065
     Dates: start: 20121203
  8. DOXORUBICIN [Suspect]
     Dosage: 50 UNITS NOT REPORTED
     Route: 065
     Dates: start: 20121211
  9. DOXORUBICIN [Suspect]
     Dosage: 50 UNITS NOT REPORTED
     Route: 065
     Dates: start: 20121227
  10. DOXORUBICIN [Suspect]
     Dosage: 50 UNITS NOT REPORTED
     Route: 065
     Dates: start: 20130117
  11. DOXORUBICIN [Suspect]
     Dosage: 50 UNITS NOT REPORTED
     Route: 065
     Dates: start: 20130131
  12. DOXORUBICIN [Suspect]
     Dosage: 50 UNITS NOT REPORTED
     Route: 065
     Dates: start: 20130214
  13. VINCRISTINE [Suspect]
     Indication: DIFFUSE LARGE B-CELL LYMPHOMA
     Route: 065
     Dates: start: 20121203
  14. VINCRISTINE [Suspect]
     Route: 065
     Dates: start: 20121211
  15. VINCRISTINE [Suspect]
     Route: 065
     Dates: start: 20121227
  16. VINCRISTINE [Suspect]
     Route: 065
     Dates: start: 20130117
  17. VINCRISTINE [Suspect]
     Route: 065
     Dates: start: 20130131
  18. VINCRISTINE [Suspect]
     Route: 065
     Dates: start: 20130214
  19. PREDNISONE [Suspect]
     Indication: DIFFUSE LARGE B-CELL LYMPHOMA
     Dosage: 100 UNITS NOT REPORTED
     Route: 065
     Dates: start: 20121203
  20. PREDNISONE [Suspect]
     Dosage: 100 UNITS NOT REPORTED
     Route: 065
     Dates: start: 20121211
  21. PREDNISONE [Suspect]
     Dosage: 100 UNITS NOT REPORTED
     Route: 065
     Dates: start: 20121227
  22. PREDNISONE [Suspect]
     Dosage: 100 UNITS NOT REPORTED
     Route: 065
     Dates: start: 20130117
  23. PREDNISONE [Suspect]
     Dosage: 100 UNITS NOT REPORTED
     Route: 065
     Dates: start: 20130131
  24. PREDNISONE [Suspect]
     Dosage: 100 UNITS NOT REPORTED
     Route: 065
     Dates: start: 20130214
  25. RHUPH20 [Suspect]
     Indication: DIFFUSE LARGE B-CELL LYMPHOMA
     Dosage: 652 UNITS NOT REPORTED
     Route: 042
     Dates: start: 20121203
  26. RHUPH20 [Suspect]
     Route: 058
     Dates: start: 20121211
  27. RHUPH20 [Suspect]
     Route: 058
     Dates: start: 20121227
  28. RHUPH20 [Suspect]
     Route: 058
     Dates: start: 20130117
  29. RHUPH20 [Suspect]
     Route: 058
     Dates: start: 20130131
  30. RHUPH20 [Suspect]
     Route: 058
     Dates: start: 20130214
  31. RHUPH20 [Suspect]
     Route: 058
     Dates: start: 20130228
  32. RITUXIMAB [Suspect]
     Indication: DIFFUSE LARGE B-CELL LYMPHOMA
     Dosage: 652 UNITS NOT REPORTED
     Route: 042
     Dates: start: 20121203
  33. PANTOPRAZOLE [Concomitant]
     Indication: GASTRITIS
     Route: 065
     Dates: start: 20130130, end: 20130326
  34. METOCLOPRAMIDE HYDROCHLORIDE [Concomitant]
     Indication: NAUSEA
     Route: 048
     Dates: start: 20130130, end: 20130326
  35. ONDANSETRON HYDROCHLORIDE [Concomitant]
     Indication: NAUSEA
     Route: 048
     Dates: start: 20130130, end: 20130205

REACTIONS (1)
  - Troponin T increased [Recovered/Resolved]
